FAERS Safety Report 10142646 (Version 1)
Quarter: 2014Q2

REPORT INFORMATION
  Report Type: Spontaneous
  Country: US (occurrence: US)
  Receive Date: 20140430
  Receipt Date: 20140430
  Transmission Date: 20141212
  Serious: No
  Sender: FDA-Public Use
  Company Number: US-009507513-1404USA015158

PATIENT
  Sex: 0

DRUGS (1)
  1. NEXPLANON [Suspect]
     Dosage: DOSE/FREQUENCY:1 ROD
     Route: 059
     Dates: start: 201404

REACTIONS (2)
  - Medical device complication [Unknown]
  - No adverse event [Unknown]
